FAERS Safety Report 24317599 (Version 1)
Quarter: 2024Q3

REPORT INFORMATION
  Report Type: Spontaneous
  Country: US (occurrence: US)
  Receive Date: 20240913
  Receipt Date: 20240913
  Transmission Date: 20241017
  Serious: No
  Sender: EISAI
  Company Number: US-Eisai-EC-2024-172121

PATIENT
  Age: 10 Year
  Sex: Female

DRUGS (2)
  1. BANZEL [Suspect]
     Active Substance: RUFINAMIDE
     Indication: Product used for unknown indication
     Dosage: DOSE AND FREQUENCY UNKNOWN
     Route: 048
  2. BANZEL [Suspect]
     Active Substance: RUFINAMIDE
     Dosage: INCREASED DOSE AND FREQUENCY UNKNOWN
     Route: 048

REACTIONS (1)
  - Change in seizure presentation [Unknown]
